FAERS Safety Report 26055758 (Version 1)
Quarter: 2025Q4

REPORT INFORMATION
  Report Type: Report from Study
  Country: PK (occurrence: PK)
  Receive Date: 20251117
  Receipt Date: 20251117
  Transmission Date: 20260118
  Serious: Yes (Death)
  Sender: ROCHE
  Company Number: PK-ROCHE-10000436898

PATIENT
  Age: 47 Year
  Sex: Female

DRUGS (1)
  1. HERCEPTIN [Suspect]
     Active Substance: TRASTUZUMAB
     Indication: Breast cancer metastatic
     Dosage: INTERVAL: 3 WEEKS??SHE RECEIVED TOTAL 12 CYCLES TILL SEP.2025.
     Route: 042
     Dates: start: 20250215

REACTIONS (1)
  - Death [Fatal]

NARRATIVE: CASE EVENT DATE: 20251113
